FAERS Safety Report 11275352 (Version 4)
Quarter: 2017Q2

REPORT INFORMATION
  Report Type: Spontaneous
  Country: CA (occurrence: CA)
  Receive Date: 20150716
  Receipt Date: 20170531
  Transmission Date: 20170829
  Serious: Yes (Hospitalization, Other)
  Sender: FDA-Public Use
  Company Number: CA-ROCHE-1455724

PATIENT
  Age: 66 Year
  Sex: Female

DRUGS (8)
  1. XOLAIR [Suspect]
     Active Substance: OMALIZUMAB
     Route: 058
     Dates: start: 20170525
  2. ALVESCO [Concomitant]
     Active Substance: CICLESONIDE
  3. XOLAIR [Suspect]
     Active Substance: OMALIZUMAB
     Route: 058
     Dates: start: 20150611
  4. XOLAIR [Suspect]
     Active Substance: OMALIZUMAB
     Route: 058
     Dates: start: 20170420
  5. SPIRIVA [Concomitant]
     Active Substance: TIOTROPIUM BROMIDE MONOHYDRATE
  6. VENTOLIN [Concomitant]
     Active Substance: ALBUTEROL SULFATE
  7. XOLAIR [Suspect]
     Active Substance: OMALIZUMAB
     Indication: ASTHMA
     Route: 058
     Dates: start: 20110929
  8. SYMBICORT [Concomitant]
     Active Substance: BUDESONIDE\FORMOTEROL FUMARATE DIHYDRATE

REACTIONS (10)
  - Chest discomfort [Recovered/Resolved]
  - Viral upper respiratory tract infection [Unknown]
  - Loss of consciousness [Recovered/Resolved]
  - Respiratory tract infection [Unknown]
  - Malaise [Unknown]
  - Blood pressure systolic increased [Recovering/Resolving]
  - Breast cancer [Unknown]
  - Hypersensitivity [Recovered/Resolved]
  - Asthma [Recovered/Resolved]
  - Cough [Unknown]

NARRATIVE: CASE EVENT DATE: 2014
